FAERS Safety Report 5737770-6 (Version None)
Quarter: 2008Q2

REPORT INFORMATION
  Report Type: 
  Country: None (occurrence: None)
  Receive Date: 20080512
  Receipt Date: 20080512
  Transmission Date: 20081010
  Serious: Yes (Life-Threatening)
  Sender: FDA-Public Use
  Company Number: None

PATIENT
  Age: 56 Year
  Sex: Male
  Weight: 83.9154 kg

DRUGS (1)
  1. DIGOXIN [Suspect]
     Indication: CARDIAC FAILURE
     Dosage: 25MG 1QD PO
     Route: 048
     Dates: start: 20080201, end: 20080508

REACTIONS (2)
  - CARDIOACTIVE DRUG LEVEL INCREASED [None]
  - PHARMACEUTICAL PRODUCT COMPLAINT [None]
